FAERS Safety Report 20329067 (Version 2)
Quarter: 2022Q2

REPORT INFORMATION
  Report Type: Spontaneous
  Country: US (occurrence: US)
  Receive Date: 20220112
  Receipt Date: 20220408
  Transmission Date: 20220721
  Serious: Yes (Other)
  Sender: FDA-Public Use
  Company Number: US-INTRA-CELLULAR THERAPIES, INC.-2021ICT00438

PATIENT
  Sex: Male
  Weight: 70.295 kg

DRUGS (11)
  1. CAPLYTA [Suspect]
     Active Substance: LUMATEPERONE
     Indication: Schizophrenia
     Dosage: 42 MG, 1X/DAY
     Route: 048
     Dates: start: 202104, end: 2021
  2. CAPLYTA [Suspect]
     Active Substance: LUMATEPERONE
     Dosage: 42 MG, 1X/DAY
     Route: 048
     Dates: start: 2021, end: 2021
  3. CAPLYTA [Suspect]
     Active Substance: LUMATEPERONE
     Dosage: 42 MG, EVERY OTHER DAY
     Route: 048
     Dates: start: 2021, end: 2021
  4. CAPLYTA [Suspect]
     Active Substance: LUMATEPERONE
     Dosage: 42 MG, 1X/DAY
     Route: 048
     Dates: start: 202110, end: 202110
  5. CAPLYTA [Suspect]
     Active Substance: LUMATEPERONE
     Dosage: 42 MG, 1X/DAY
     Route: 048
     Dates: start: 202110
  6. UNSPECIFIED INGREDIENT [Suspect]
     Active Substance: UNSPECIFIED INGREDIENT
     Indication: Depression
     Dosage: UNK
  7. UNSPECIFIED INGREDIENT [Suspect]
     Active Substance: UNSPECIFIED INGREDIENT
     Dosage: UNK
  8. UNSPECIFIED INGREDIENT [Suspect]
     Active Substance: UNSPECIFIED INGREDIENT
     Indication: Hypersensitivity
     Dosage: UNK
  9. UNSPECIFIED INGREDIENT [Suspect]
     Active Substance: UNSPECIFIED INGREDIENT
     Indication: Asthma
     Dosage: UNK
  10. ALBUTEROL [Concomitant]
     Active Substance: ALBUTEROL
  11. TYLENOL [Concomitant]
     Active Substance: ACETAMINOPHEN

REACTIONS (27)
  - Tardive dyskinesia [Recovered/Resolved]
  - Depression [Not Recovered/Not Resolved]
  - Insomnia [Recovered/Resolved]
  - Irritability [Not Recovered/Not Resolved]
  - Withdrawal syndrome [Not Recovered/Not Resolved]
  - Judgement impaired [Recovered/Resolved]
  - Pain [Unknown]
  - Stress [Not Recovered/Not Resolved]
  - Nightmare [Recovered/Resolved]
  - Mood swings [Not Recovered/Not Resolved]
  - Headache [Unknown]
  - Blister [Recovered/Resolved]
  - Skin erosion [Recovered/Resolved]
  - Poor quality sleep [Recovered/Resolved]
  - Psychiatric symptom [Not Recovered/Not Resolved]
  - Epinephrine abnormal [Not Recovered/Not Resolved]
  - Sleep terror [Recovered/Resolved]
  - Middle insomnia [Not Recovered/Not Resolved]
  - Injury [Not Recovered/Not Resolved]
  - Therapeutic product effect incomplete [Recovered/Resolved]
  - Product dose omission issue [Recovered/Resolved]
  - Intentional product misuse [Recovered/Resolved]
  - Product package associated injury [Unknown]
  - Product after taste [Not Recovered/Not Resolved]
  - Product packaging difficult to open [Recovered/Resolved]
  - Product container issue [Recovered/Resolved]
  - Somnolence [Not Recovered/Not Resolved]

NARRATIVE: CASE EVENT DATE: 20210101
